FAERS Safety Report 22250098 (Version 1)
Quarter: 2023Q2

REPORT INFORMATION
  Report Type: Spontaneous
  Country: US (occurrence: None)
  Receive Date: 20230424
  Receipt Date: 20230424
  Transmission Date: 20230721
  Serious: No
  Sender: FDA-Public Use
  Company Number: None

PATIENT
  Age: 62 Year
  Sex: Female
  Weight: 83.25 kg

DRUGS (1)
  1. KRYSTEXXA [Suspect]
     Active Substance: PEGLOTICASE
     Indication: Gout
     Route: 042

REACTIONS (7)
  - Therapy interrupted [None]
  - Infusion related reaction [None]
  - Feeling hot [None]
  - Flushing [None]
  - Lacrimation increased [None]
  - Pain [None]
  - Brain neoplasm [None]

NARRATIVE: CASE EVENT DATE: 20230422
